FAERS Safety Report 5156651-2 (Version None)
Quarter: 2006Q4

REPORT INFORMATION
  Report Type: 
  Country: None (occurrence: None)
  Receive Date: 20061115
  Receipt Date: 20061102
  Transmission Date: 20070319
  Serious: Yes (Hospitalization, Disabling, Other)
  Sender: FDA-Public Use
  Company Number: 2006135831

PATIENT
  Age: 63 Year
  Sex: Female
  Weight: 90.7194 kg

DRUGS (11)
  1. OGEN [Suspect]
     Indication: HORMONE REPLACEMENT THERAPY
     Dosage: 0.625 MG
     Dates: start: 19800101
  2. LYRICA [Suspect]
     Indication: NEUROPATHY
     Dosage: 100 MG (100 MG, 1 IN 1 D)
     Dates: start: 20051201
  3. DARIFENACIN (DARIFENACIN) [Concomitant]
  4. DARVON [Concomitant]
  5. ALPRAZOLAM [Concomitant]
  6. KLOR-CON [Concomitant]
  7. TRIAMTERENE (TIRAMTERENE) [Concomitant]
  8. PRILOSEC [Concomitant]
  9. ALBUTEROL [Concomitant]
  10. POLYTHYLENE GLYCOL (POLYTHYLENE GLYCOL) [Concomitant]
  11. WELLBUTRIN [Concomitant]

REACTIONS (12)
  - BLOOD TRIGLYCERIDES INCREASED [None]
  - DYSPNOEA [None]
  - FEELING ABNORMAL [None]
  - GAIT DISTURBANCE [None]
  - HYPOTHYROIDISM [None]
  - NEUROPATHY [None]
  - OXYGEN SATURATION DECREASED [None]
  - PAIN [None]
  - POLYP [None]
  - POST POLIO SYNDROME [None]
  - RAYNAUD'S PHENOMENON [None]
  - THYROID DISORDER [None]
